FAERS Safety Report 10357242 (Version 3)
Quarter: 2014Q3

REPORT INFORMATION
  Report Type: Spontaneous
  Country: GB (occurrence: GB)
  Receive Date: 20140801
  Receipt Date: 20140910
  Transmission Date: 20150326
  Serious: Yes (Other)
  Sender: FDA-Public Use
  Company Number: PHHY2014GB091391

PATIENT
  Sex: Male

DRUGS (4)
  1. RENAVIT [Concomitant]
     Dosage: 1 DF, UNK
  2. STEROIDS [Concomitant]
     Active Substance: UNSPECIFIED INGREDIENT
     Indication: POLYMYALGIA RHEUMATICA
  3. OMEPRAZOLE. [Suspect]
     Active Substance: OMEPRAZOLE
     Indication: PROPHYLAXIS
     Dosage: UNK UKN, UNK
     Route: 048
  4. CALCEOS [Concomitant]
     Active Substance: CALCIUM CARBONATE\CHOLECALCIFEROL
     Dosage: 1 DF, BID

REACTIONS (7)
  - Nausea [Unknown]
  - Renal failure [Recovering/Resolving]
  - Anaemia [Unknown]
  - Weight decreased [Unknown]
  - Tubulointerstitial nephritis [Recovering/Resolving]
  - Decreased appetite [Unknown]
  - Fatigue [Unknown]
